FAERS Safety Report 6686010-2 (Version None)
Quarter: 2010Q2

REPORT INFORMATION
  Report Type: 
  Country: None (occurrence: None)
  Receive Date: 20100415
  Receipt Date: 20100415
  Transmission Date: 20101027
  Serious: Yes (Disabling)
  Sender: FDA-Public Use
  Company Number: None

PATIENT
  Age: 39 Year
  Sex: Female
  Weight: 93.8946 kg

DRUGS (1)
  1. HYDROCODONE BITARTRATE [Suspect]
     Indication: BACK PAIN
     Dosage: 1 PILL
     Dates: start: 20100414, end: 20100414

REACTIONS (4)
  - BURNING SENSATION [None]
  - PAIN [None]
  - PRURITUS [None]
  - URTICARIA [None]
